FAERS Safety Report 4464004-5 (Version None)
Quarter: 2004Q3

REPORT INFORMATION
  Report Type: 
  Country: None (occurrence: None)
  Receive Date: 20040929
  Receipt Date: 20040920
  Transmission Date: 20050211
  Serious: Yes (Other)
  Sender: FDA-Public Use
  Company Number: 2004-09-1161

PATIENT
  Sex: Female

DRUGS (1)
  1. CELESTONE [Suspect]
     Dosage: 4 MG QD ORAL/1 DOSE(S)
     Route: 048

REACTIONS (3)
  - FACE OEDEMA [None]
  - GENERALISED OEDEMA [None]
  - HYPERSENSITIVITY [None]
